FAERS Safety Report 18418562 (Version 3)
Quarter: 2021Q3

REPORT INFORMATION
  Report Type: Spontaneous
  Country: JP (occurrence: JP)
  Receive Date: 20201023
  Receipt Date: 20210702
  Transmission Date: 20211014
  Serious: Yes (Hospitalization)
  Sender: FDA-Public Use
  Company Number: JP-B.I. PHARMACEUTICALS,INC./RIDGEFIELD-2020-BI-055479

PATIENT
  Age: 77 Year
  Sex: Female
  Weight: 31.6 kg

DRUGS (19)
  1. BI?SIFROL [Suspect]
     Active Substance: PRAMIPEXOLE
     Indication: PARKINSON^S DISEASE
     Route: 048
     Dates: start: 20150519, end: 20161205
  2. DOPACOL [Suspect]
     Active Substance: CARBIDOPA\LEVODOPA
     Route: 048
  3. TAPROS [TAFLUPROST] [Concomitant]
     Active Substance: TAFLUPROST
     Indication: GLAUCOMA
     Route: 031
  4. STALEVO [LEVOCETIRIZINE DIHYDROCHLORIDE] [Suspect]
     Active Substance: LEVOCETIRIZINE DIHYDROCHLORIDE
     Route: 048
     Dates: start: 20170613, end: 20181015
  5. DOPACOL [Suspect]
     Active Substance: CARBIDOPA\LEVODOPA
     Indication: PARKINSON^S DISEASE
     Route: 048
     Dates: start: 20160119, end: 20160201
  6. BI?SIFROL [Suspect]
     Active Substance: PRAMIPEXOLE
     Route: 048
     Dates: start: 20161228, end: 20181018
  7. BI?SIFROL [Suspect]
     Active Substance: PRAMIPEXOLE
     Route: 048
  8. STALEVO [LEVOCETIRIZINE DIHYDROCHLORIDE] [Suspect]
     Active Substance: LEVOCETIRIZINE DIHYDROCHLORIDE
     Route: 048
     Dates: start: 20160109, end: 20170612
  9. DOPACOL [Suspect]
     Active Substance: CARBIDOPA\LEVODOPA
     Route: 048
     Dates: start: 20181019
  10. SYMMETREL [Suspect]
     Active Substance: AMANTADINE HYDROCHLORIDE
     Indication: PARKINSON^S DISEASE
     Route: 048
     Dates: start: 20160517, end: 20181009
  11. STALEVO [LEVOCETIRIZINE DIHYDROCHLORIDE] [Suspect]
     Active Substance: LEVOCETIRIZINE DIHYDROCHLORIDE
     Indication: PARKINSON^S DISEASE
     Route: 048
     Dates: end: 20150714
  12. YOKUKANSAN [Concomitant]
     Active Substance: HERBALS
     Indication: PRODUCT USED FOR UNKNOWN INDICATION
     Route: 048
     Dates: start: 20181009, end: 20181013
  13. BI?SIFROL [Suspect]
     Active Substance: PRAMIPEXOLE
     Route: 048
     Dates: start: 20161206, end: 20161227
  14. DOPACOL [Suspect]
     Active Substance: CARBIDOPA\LEVODOPA
     Route: 048
     Dates: start: 20160202
  15. SODIUM RABEPRAZOLE [Concomitant]
     Active Substance: RABEPRAZOLE SODIUM
     Indication: GASTROOESOPHAGEAL REFLUX DISEASE
     Route: 048
     Dates: start: 20150421
  16. ERYTHROCIN [ERYTHROMYCIN] [Concomitant]
     Active Substance: ERYTHROMYCIN
     Indication: BRONCHIECTASIS
     Route: 048
  17. STALEVO [LEVOCETIRIZINE DIHYDROCHLORIDE] [Suspect]
     Active Substance: LEVOCETIRIZINE DIHYDROCHLORIDE
     Route: 048
     Dates: start: 20150714, end: 20160108
  18. MENESIT [Concomitant]
     Active Substance: CARBIDOPA\LEVODOPA
     Indication: PRODUCT USED FOR UNKNOWN INDICATION
     Route: 048
  19. MUCOSOLVAN [Concomitant]
     Active Substance: AMBROXOL HYDROCHLORIDE
     Indication: BRONCHIECTASIS
     Route: 048

REACTIONS (2)
  - Dyspnoea [Unknown]
  - Hallucination [Recovering/Resolving]

NARRATIVE: CASE EVENT DATE: 20181008
